FAERS Safety Report 22103644 (Version 1)
Quarter: 2023Q1

REPORT INFORMATION
  Report Type: Spontaneous
  Country: US (occurrence: None)
  Receive Date: 20230315
  Receipt Date: 20230315
  Transmission Date: 20230418
  Serious: Yes (Hospitalization)
  Sender: FDA-Public Use
  Company Number: None

PATIENT
  Sex: Female

DRUGS (1)
  1. OTEZLA [Suspect]
     Active Substance: APREMILAST
     Indication: Psoriatic arthropathy
     Dosage: FREQUENCY : EVERY OTHER DAY;?
     Route: 048
     Dates: start: 202212

REACTIONS (7)
  - Decreased appetite [None]
  - Nausea [None]
  - Dizziness [None]
  - Weight decreased [None]
  - Pneumonia [None]
  - Cardiac failure congestive [None]
  - Therapy cessation [None]
